FAERS Safety Report 16645152 (Version 1)
Quarter: 2019Q3

REPORT INFORMATION
  Report Type: Spontaneous
  Country: EG (occurrence: EG)
  Receive Date: 20190729
  Receipt Date: 20190729
  Transmission Date: 20191004
  Serious: Yes (Other)
  Sender: FDA-Public Use
  Company Number: EG-BIOMARINAP-EG-2019-124912

PATIENT
  Age: 4 Year
  Sex: Male

DRUGS (1)
  1. ALDURAZYME [Suspect]
     Active Substance: LARONIDASE
     Indication: MUCOPOLYSACCHARIDOSIS I
     Dosage: UNK
     Route: 065
     Dates: start: 20190525

REACTIONS (9)
  - Melaena [Unknown]
  - Cerebral ventricle dilatation [Unknown]
  - General physical health deterioration [Unknown]
  - Muscular weakness [Unknown]
  - Haematemesis [Unknown]
  - Walking disability [Unknown]
  - Lower respiratory tract infection [Unknown]
  - Motor dysfunction [Unknown]
  - Gastritis [Recovering/Resolving]
